FAERS Safety Report 6574852-3 (Version None)
Quarter: 2010Q1

REPORT INFORMATION
  Report Type: 
  Country: None (occurrence: None)
  Receive Date: 20100209
  Receipt Date: 20100204
  Transmission Date: 20100710
  Serious: Yes (Death, Hospitalization)
  Sender: FDA-Public Use
  Company Number: PHEH2009US17930

PATIENT
  Sex: Male

DRUGS (2)
  1. EXJADE [Suspect]
     Indication: IRON OVERLOAD
     Dosage: 2000 MG, QD
     Route: 048
     Dates: start: 20091116
  2. EXJADE [Suspect]
     Indication: TRANSFUSION

REACTIONS (3)
  - MALIGNANT NEOPLASM PROGRESSION [None]
  - SEPSIS [None]
  - WHITE BLOOD CELL COUNT DECREASED [None]
